FAERS Safety Report 8170522-9 (Version None)
Quarter: 2012Q1

REPORT INFORMATION
  Report Type: 
  Country: None (occurrence: None)
  Receive Date: 20120106
  Receipt Date: 20110329
  Transmission Date: 20120608
  Serious: Yes (Other)
  Sender: FDA-Public Use
  Company Number: US-006007

PATIENT
  Age: 55 Year
  Sex: Male

DRUGS (6)
  1. DECADRON [Concomitant]
  2. DEXAMETHASONE [Concomitant]
  3. MULTIHANCE [Suspect]
     Indication: METASTASIS
     Dosage: 15ML ONCE INTRAVENOUS (NOT OTHERWISE SPECIFIED)
     Route: 042
     Dates: start: 20110318, end: 20110318
  4. MULTIHANCE [Suspect]
     Indication: LUNG NEOPLASM MALIGNANT
     Dosage: 15ML ONCE INTRAVENOUS (NOT OTHERWISE SPECIFIED)
     Route: 042
     Dates: start: 20110318, end: 20110318
  5. MULTIHANCE [Suspect]
     Indication: NUCLEAR MAGNETIC RESONANCE IMAGING BRAIN
     Dosage: 15ML ONCE INTRAVENOUS (NOT OTHERWISE SPECIFIED)
     Route: 042
     Dates: start: 20110318, end: 20110318
  6. DILAUDID [Concomitant]

REACTIONS (2)
  - ANAPHYLACTOID REACTION [None]
  - CONVULSION [None]
